FAERS Safety Report 23790918 (Version 1)
Quarter: 2024Q2

REPORT INFORMATION
  Report Type: Spontaneous
  Country: US (occurrence: None)
  Receive Date: 20240427
  Receipt Date: 20240427
  Transmission Date: 20240716
  Serious: Yes (Other)
  Sender: FDA-Public Use
  Company Number: US-ROCHE-3551907

PATIENT
  Age: 59 Year
  Sex: Female
  Weight: 122.58 kg

DRUGS (5)
  1. OCREVUS [Suspect]
     Active Substance: OCRELIZUMAB
     Indication: Multiple sclerosis
     Route: 042
     Dates: start: 20200227
  2. ACETAMINOPHEN [Concomitant]
     Active Substance: ACETAMINOPHEN
     Dosage: 975 MH BY MOUTH, 30 MINUTES PRIOR TO EACH INFUSION
     Route: 048
  3. DIPHENHYDRAMINE [Concomitant]
     Active Substance: DIPHENHYDRAMINE
     Dosage: OVER 1-2 MINUTES, 30 MINUTES PRIOR TO EACH INFUSION
     Route: 042
  4. METHYLPREDNISOLONE [Concomitant]
     Active Substance: METHYLPREDNISOLONE
     Dosage: OVER 3-5 MINUTES, 30 MINUTES PRIOR TO EACH INFUSION
     Route: 042
  5. FAMOTIDINE [Concomitant]
     Active Substance: FAMOTIDINE
     Dosage: OVER 1-2 MINUTES, 30 MINUTES PRIOR TO EACH INFUSION
     Route: 042

REACTIONS (2)
  - Lung disorder [Not Recovered/Not Resolved]
  - Neoplasm malignant [Not Recovered/Not Resolved]
